FAERS Safety Report 20235945 (Version 4)
Quarter: 2022Q3

REPORT INFORMATION
  Report Type: Report from Study
  Country: US (occurrence: US)
  Receive Date: 20211228
  Receipt Date: 20220721
  Transmission Date: 20221027
  Serious: Yes (Other)
  Sender: FDA-Public Use
  Company Number: US-NOVARTISPH-NVSC2021US294122

PATIENT
  Age: 75 Year
  Sex: Male

DRUGS (1)
  1. ENTRESTO [Suspect]
     Active Substance: SACUBITRIL\VALSARTAN
     Indication: Product used for unknown indication
     Dosage: 49/51 MG, BID
     Route: 048
     Dates: start: 20210617

REACTIONS (8)
  - Dyspnoea [Not Recovered/Not Resolved]
  - Device malfunction [Not Recovered/Not Resolved]
  - Haemoptysis [Recovered/Resolved]
  - COVID-19 [Recovered/Resolved]
  - Wheezing [Unknown]
  - Cough [Recovered/Resolved]
  - Ejection fraction abnormal [Not Recovered/Not Resolved]
  - Product dose omission issue [Unknown]

NARRATIVE: CASE EVENT DATE: 20211201
